FAERS Safety Report 7159376-7 (Version None)
Quarter: 2010Q4

REPORT INFORMATION
  Report Type: 
  Country: None (occurrence: None)
  Receive Date: 20101214
  Receipt Date: 20100825
  Transmission Date: 20110411
  Serious: No
  Sender: FDA-Public Use
  Company Number: US-ASTRAZENECA-2010SE40096

PATIENT
  Age: 55 Year
  Sex: Female
  Weight: 56.7 kg

DRUGS (5)
  1. CRESTOR [Suspect]
     Route: 048
     Dates: start: 20100725, end: 20100804
  2. LEXAPRO [Concomitant]
  3. OMEPRAZOLE [Concomitant]
  4. TRAZODONE HCL [Concomitant]
  5. ASCORBIC ACID [Concomitant]

REACTIONS (5)
  - ADVERSE DRUG REACTION [None]
  - DYSPEPSIA [None]
  - FLATULENCE [None]
  - HEADACHE [None]
  - VISION BLURRED [None]
